FAERS Safety Report 11920112 (Version 1)
Quarter: 2016Q1

REPORT INFORMATION
  Report Type: Spontaneous
  Country: JP (occurrence: JP)
  Receive Date: 20160115
  Receipt Date: 20160115
  Transmission Date: 20160526
  Serious: Yes (Other)
  Sender: FDA-Public Use
  Company Number: JP-009507513-2005-09-0042

PATIENT
  Sex: Female

DRUGS (3)
  1. INTRON A [Suspect]
     Active Substance: INTERFERON ALFA-2B
     Indication: PRODUCT USED FOR UNKNOWN INDICATION
     Dosage: DOSES/INT-DURATION-UNIT: 1-1-804
     Route: 030
     Dates: start: 20041020, end: 20041107
  2. REBETOL [Suspect]
     Active Substance: RIBAVIRIN
     Indication: PRODUCT USED FOR UNKNOWN INDICATION
     Dosage: 600 MG, UNK
     Route: 048
     Dates: start: 20041020, end: 20050228
  3. INTRON A [Suspect]
     Active Substance: INTERFERON ALFA-2B
     Dosage: DOSES/INT-DURATION-UNIT: 3-1-803
     Route: 030
     Dates: start: 20041108, end: 20050303

REACTIONS (3)
  - Exposure during pregnancy [Unknown]
  - Threatened labour [Unknown]
  - Abortion threatened [Unknown]

NARRATIVE: CASE EVENT DATE: 20050911
